FAERS Safety Report 15804064 (Version 2)
Quarter: 2019Q1

REPORT INFORMATION
  Report Type: Spontaneous
  Country: ES (occurrence: ES)
  Receive Date: 20190109
  Receipt Date: 20190320
  Transmission Date: 20190417
  Serious: Yes (Other)
  Sender: FDA-Public Use
  Company Number: ES-BAYER-2019-006691

PATIENT
  Age: 66 Year
  Sex: Male

DRUGS (2)
  1. XOFIGO [Suspect]
     Active Substance: RADIUM RA-223 DICHLORIDE
     Indication: METASTASES TO BONE
  2. XOFIGO [Suspect]
     Active Substance: RADIUM RA-223 DICHLORIDE
     Indication: PROSTATE CANCER
     Dosage: UNK
     Dates: start: 20151218

REACTIONS (9)
  - Dizziness [None]
  - Prostatic specific antigen abnormal [None]
  - Pre-existing condition improved [None]
  - Platelet count decreased [None]
  - Prostate cancer [None]
  - Decreased appetite [None]
  - Mucosal inflammation [None]
  - Asthenia [None]
  - Nausea [None]
